FAERS Safety Report 8387722-5 (Version None)
Quarter: 2012Q2

REPORT INFORMATION
  Report Type: 
  Country: None (occurrence: None)
  Receive Date: 20120525
  Receipt Date: 20120515
  Transmission Date: 20120825
  Serious: Yes (Death, Hospitalization)
  Sender: FDA-Public Use
  Company Number: HU-ELI_LILLY_AND_COMPANY-HU201203008994

PATIENT
  Age: 38 Year
  Sex: Male
  Weight: 40 kg

DRUGS (7)
  1. PANTOPRAZOLE [Concomitant]
  2. FORTEO [Suspect]
     Indication: OSTEOPOROSIS
     Dosage: 20 UG, UNK
     Dates: start: 20120101, end: 20120225
  3. AMLODIPINE BESYLATE [Concomitant]
  4. VITAMIN D [Concomitant]
  5. ANALGESICS [Concomitant]
  6. PENTOSAN [Concomitant]
  7. METHYLPREDNISOLONE [Concomitant]

REACTIONS (7)
  - CRYSTAL URINE PRESENT [None]
  - WHITE BLOOD CELL DISORDER [None]
  - SUDDEN CARDIAC DEATH [None]
  - BLOOD ALKALINE PHOSPHATASE INCREASED [None]
  - HOSPITALISATION [None]
  - HEPATIC ENZYME INCREASED [None]
  - RED BLOOD CELL SEDIMENTATION RATE ABNORMAL [None]
